FAERS Safety Report 15194441 (Version 1)
Quarter: 2018Q3

REPORT INFORMATION
  Report Type: Spontaneous
  Country: IN (occurrence: IN)
  Receive Date: 20180725
  Receipt Date: 20180725
  Transmission Date: 20181010
  Serious: Yes (Hospitalization, Other)
  Sender: FDA-Public Use
  Company Number: IN-LUPIN LIMITED-2018-05256

PATIENT
  Age: 18 Year
  Sex: Female

DRUGS (1)
  1. AMLODIPINE [Suspect]
     Active Substance: AMLODIPINE BESYLATE
     Indication: SUICIDE ATTEMPT
     Dosage: 150 MG, SINGLE (30 TABLETS AT A TIME)
     Route: 048

REACTIONS (5)
  - Tachypnoea [Unknown]
  - Circulatory collapse [Unknown]
  - Intentional overdose [Unknown]
  - Urine output decreased [Unknown]
  - Toxicity to various agents [Unknown]
